FAERS Safety Report 9349877 (Version 1)
Quarter: 2013Q2

REPORT INFORMATION
  Report Type: Spontaneous
  Country: US (occurrence: US)
  Receive Date: 20130614
  Receipt Date: 20130614
  Transmission Date: 20140414
  Serious: Yes (Other)
  Sender: FDA-Public Use
  Company Number: US-ASTRAZENECA-2013SE41883

PATIENT
  Age: 68 Year
  Sex: Male
  Weight: 122 kg

DRUGS (16)
  1. CRESTOR [Suspect]
     Indication: BLOOD CHOLESTEROL INCREASED
     Route: 048
     Dates: start: 2007, end: 201305
  2. APIDRA SOLOSTAR [Concomitant]
     Indication: DIABETES MELLITUS
     Route: 058
     Dates: start: 2013
  3. APIDRA SOLOSTAR [Concomitant]
     Indication: DIABETES MELLITUS
     Route: 058
     Dates: start: 2013
  4. APIDRA SOLOSTAR [Concomitant]
     Indication: DIABETES MELLITUS
     Route: 058
     Dates: start: 2013
  5. MIXTARD [Concomitant]
     Indication: DIABETES MELLITUS
     Route: 058
     Dates: start: 2000
  6. MIXTARD [Concomitant]
     Indication: DIABETES MELLITUS
     Route: 058
     Dates: start: 201305
  7. LANTUS [Concomitant]
     Indication: DIABETES MELLITUS
     Route: 058
     Dates: start: 201305
  8. AVODART [Concomitant]
     Indication: PROSTATIC DISORDER
     Route: 048
     Dates: start: 201304
  9. TARNSULIN [Concomitant]
     Indication: PROSTATIC DISORDER
     Route: 048
     Dates: start: 201304
  10. EXAMIVE [Concomitant]
     Route: 048
     Dates: start: 2013
  11. CONCOR [Concomitant]
     Indication: BLOOD PRESSURE
     Route: 048
     Dates: start: 2003, end: 201302
  12. CONCOR [Concomitant]
     Indication: BLOOD PRESSURE
     Route: 048
     Dates: start: 201302
  13. EXSORGE [Concomitant]
     Indication: HYPERTENSION
     Dosage: 160-5 MG DAILY
     Route: 048
     Dates: start: 201302
  14. JUSPRIN [Concomitant]
     Indication: ANTICOAGULANT THERAPY
     Route: 048
     Dates: start: 201304
  15. GLUCOPHAGE [Concomitant]
     Indication: DIABETES MELLITUS
     Route: 048
     Dates: start: 2003
  16. LIPANYL SUPRA [Concomitant]
     Indication: BLOOD TRIGLYCERIDES ABNORMAL
     Route: 048
     Dates: start: 2007

REACTIONS (13)
  - Movement disorder [Not Recovered/Not Resolved]
  - Blood urea increased [Not Recovered/Not Resolved]
  - Gait disturbance [Not Recovered/Not Resolved]
  - Activities of daily living impaired [Not Recovered/Not Resolved]
  - Malaise [Not Recovered/Not Resolved]
  - Dyskinesia [Not Recovered/Not Resolved]
  - Prostatic disorder [Not Recovered/Not Resolved]
  - Blood triglycerides increased [Unknown]
  - Muscle disorder [Not Recovered/Not Resolved]
  - Muscular weakness [Not Recovered/Not Resolved]
  - Fatigue [Not Recovered/Not Resolved]
  - Blood glucose increased [Not Recovered/Not Resolved]
  - Amnesia [Not Recovered/Not Resolved]
